FAERS Safety Report 8234372-7 (Version None)
Quarter: 2012Q1

REPORT INFORMATION
  Report Type: 
  Country: None (occurrence: None)
  Receive Date: 20120326
  Receipt Date: 20120319
  Transmission Date: 20120608
  Serious: Yes (Disabling, Other)
  Sender: FDA-Public Use
  Company Number: US-ROCHE-1037778

PATIENT
  Sex: Female
  Weight: 43.584 kg

DRUGS (4)
  1. ACCUTANE [Suspect]
     Route: 065
     Dates: start: 19940901, end: 19951001
  2. ACCUTANE [Suspect]
     Route: 065
     Dates: start: 19981101, end: 20020701
  3. ACCUTANE [Suspect]
     Indication: ACNE
     Route: 065
     Dates: start: 19920801, end: 19940301
  4. ACCUTANE [Suspect]
     Dates: start: 19960601, end: 19970601

REACTIONS (5)
  - CROHN'S DISEASE [None]
  - HEADACHE [None]
  - COLITIS ULCERATIVE [None]
  - IRRITABLE BOWEL SYNDROME [None]
  - INFLAMMATORY BOWEL DISEASE [None]
